FAERS Safety Report 9554569 (Version 1)
Quarter: 2013Q3

REPORT INFORMATION
  Report Type: Spontaneous
  Country: TW (occurrence: TW)
  Receive Date: 20130925
  Receipt Date: 20130925
  Transmission Date: 20140515
  Serious: Yes (Hospitalization)
  Sender: FDA-Public Use
  Company Number: TW-MYLANLABS-2013S1020738

PATIENT
  Age: 67 Year
  Sex: Female

DRUGS (4)
  1. MOXIFLOXACIN [Suspect]
     Indication: PNEUMONIA
     Dosage: 400 MG/DAY
     Route: 065
  2. WARFARIN [Interacting]
     Indication: ANTICOAGULANT THERAPY
     Dosage: 2.5 MG/DAY
     Route: 065
  3. FUROSEMIDE [Concomitant]
     Dosage: 40 MG/DAY
     Route: 065
  4. PANTOPRAZOLE [Concomitant]
     Dosage: 40 MG/DAY
     Route: 065

REACTIONS (4)
  - Abdominal wall haematoma [Recovering/Resolving]
  - Peritoneal haemorrhage [Recovering/Resolving]
  - Drug interaction [Recovering/Resolving]
  - International normalised ratio increased [Recovering/Resolving]
